FAERS Safety Report 15683478 (Version 2)
Quarter: 2019Q1

REPORT INFORMATION
  Report Type: Spontaneous
  Country: AU (occurrence: AU)
  Receive Date: 20181204
  Receipt Date: 20190121
  Transmission Date: 20190417
  Serious: Yes (Hospitalization, Other)
  Sender: FDA-Public Use
  Company Number: AU-GW PHARMA-201808AUGW0350

PATIENT

DRUGS (8)
  1. FRISIUM [Concomitant]
     Active Substance: CLOBAZAM
     Indication: SEIZURE
     Dosage: 25 MILLIGRAM, QD (1 TABLET AM AND 1.5 TABLETS PM)
     Route: 065
     Dates: start: 2010
  2. ALODORM [Concomitant]
     Active Substance: NITRAZEPAM
     Indication: INSOMNIA
     Dosage: 5 MILLIGRAM, QD AT NIGHT
     Route: 065
     Dates: start: 20180907
  3. OSTEVIT-D [Concomitant]
     Indication: VITAMIN SUPPLEMENTATION
     Dosage: 25 MICROGRAM, BID
     Route: 065
  4. IRON [FERROUS SULFATE] [Concomitant]
     Indication: SUPPLEMENTATION THERAPY
     Dosage: UNK
     Route: 065
     Dates: start: 20181004, end: 20181018
  5. EPILIM [Concomitant]
     Active Substance: VALPROATE SODIUM
     Indication: SEIZURE
     Dosage: 600 MILLIGRAM, QD (1 TABLET AM AND 2 TABLETS PM)
     Route: 065
     Dates: start: 2007
  6. INOVELON [Concomitant]
     Active Substance: RUFINAMIDE
     Indication: SEIZURE
     Dosage: 600 MILLIGRAM, BID (1 TABLET AM, 1 TABLET PM AND 1X200MG TABLET)
     Route: 065
     Dates: start: 2012
  7. INOVELON [Concomitant]
     Active Substance: RUFINAMIDE
     Indication: SEIZURE
     Dosage: 1200 MILLIGRAM, QD (1 TABLET AM, 1 TABLET PM AND
     Route: 065
     Dates: start: 2012
  8. EPIDIOLEX [Suspect]
     Active Substance: CANNABIDIOL
     Indication: LENNOX-GASTAUT SYNDROME
     Dosage: 23.3 MG/KG, 1000 MILLIGRAM, QD
     Route: 048
     Dates: start: 20171013

REACTIONS (4)
  - Lower respiratory tract infection [Recovered/Resolved]
  - Generalised tonic-clonic seizure [Recovered/Resolved]
  - Generalised tonic-clonic seizure [Recovered/Resolved]
  - Status epilepticus [Recovered/Resolved]

NARRATIVE: CASE EVENT DATE: 20180829
